FAERS Safety Report 17252493 (Version 1)
Quarter: 2020Q1

REPORT INFORMATION
  Report Type: Spontaneous
  Country: US (occurrence: US)
  Receive Date: 20200108
  Receipt Date: 20200108
  Transmission Date: 20200409
  Serious: Yes (Life-Threatening, Hospitalization, Other)
  Sender: FDA-Public Use
  Company Number: None

PATIENT
  Age: 42 Year
  Sex: Female
  Weight: 63 kg

DRUGS (1)
  1. MIRALAX [Suspect]
     Active Substance: POLYETHYLENE GLYCOL 3350
     Indication: BOWEL PREPARATION
     Dosage: ?          QUANTITY:8 OUNCE(S);?
     Route: 048
     Dates: start: 20181205, end: 20181206

REACTIONS (2)
  - Intestinal obstruction [None]
  - Intestinal gangrene [None]

NARRATIVE: CASE EVENT DATE: 20190701
